FAERS Safety Report 10891714 (Version 2)
Quarter: 2015Q2

REPORT INFORMATION
  Report Type: Spontaneous
  Country: IT (occurrence: IT)
  Receive Date: 20150306
  Receipt Date: 20150528
  Transmission Date: 20150821
  Serious: Yes (Hospitalization)
  Sender: FDA-Public Use
  Company Number: IT-TEVA-544741ACC

PATIENT
  Age: 44 Year
  Sex: Female

DRUGS (2)
  1. CITALOPRAM [Suspect]
     Active Substance: CITALOPRAM HYDROBROMIDE
     Indication: BIPOLAR DISORDER
     Route: 048
     Dates: start: 20140907, end: 20140907
  2. SANDOMIGRAN - 0.5 MG COMPRESSE RIVESTITE - NOVARTIS FARMA S.P.A. [Suspect]
     Active Substance: PIZOTYLINE MALATE
     Indication: MIGRAINE
     Route: 048
     Dates: start: 20140907, end: 20140907

REACTIONS (5)
  - Haematemesis [Recovering/Resolving]
  - Sopor [Recovering/Resolving]
  - Long QT syndrome [Recovering/Resolving]
  - Epistaxis [Recovering/Resolving]
  - Drug abuse [Recovering/Resolving]

NARRATIVE: CASE EVENT DATE: 20140907
